FAERS Safety Report 23871071 (Version 1)
Quarter: 2024Q2

REPORT INFORMATION
  Report Type: Report from Study
  Country: US (occurrence: US)
  Receive Date: 20240518
  Receipt Date: 20240518
  Transmission Date: 20240716
  Serious: Yes (Hospitalization, Other)
  Sender: FDA-Public Use
  Company Number: US-ABBVIE-5765016

PATIENT
  Age: 57 Year
  Sex: Female

DRUGS (1)
  1. SKYRIZI [Suspect]
     Active Substance: RISANKIZUMAB-RZAA
     Indication: Psoriasis
     Dosage: FORM STRENGTH: 150MG/ML
     Route: 058
     Dates: start: 2021

REACTIONS (8)
  - Benign ovarian tumour [Unknown]
  - Psoriasis [Unknown]
  - Weight increased [Unknown]
  - Abdominal distension [Unknown]
  - Fallopian tube cyst [Unknown]
  - Vaginal haemorrhage [Unknown]
  - Stress [Unknown]
  - Skin fissures [Unknown]

NARRATIVE: CASE EVENT DATE: 20231001
